FAERS Safety Report 6231479-0 (Version None)
Quarter: 2009Q2

REPORT INFORMATION
  Report Type: 
  Country: None (occurrence: None)
  Receive Date: 20090616
  Receipt Date: 20090608
  Transmission Date: 20091009
  Serious: Yes (Hospitalization)
  Sender: FDA-Public Use
  Company Number: A0776648A

PATIENT
  Age: 56 Year
  Sex: Female

DRUGS (2)
  1. AVANDIA [Suspect]
     Dosage: 4MG TWICE PER DAY
     Route: 048
     Dates: start: 20060501, end: 20070301
  2. AVANDAMET [Suspect]
     Route: 048
     Dates: start: 20010401, end: 20060501

REACTIONS (2)
  - MYOCARDIAL INFARCTION [None]
  - MYOCARDIAL ISCHAEMIA [None]
